FAERS Safety Report 19582343 (Version 1)
Quarter: 2021Q3

REPORT INFORMATION
  Report Type: Spontaneous
  Country: US (occurrence: US)
  Receive Date: 20210720
  Receipt Date: 20210720
  Transmission Date: 20211014
  Serious: Yes (Hospitalization)
  Sender: FDA-Public Use
  Company Number: None

PATIENT
  Age: 76 Year
  Sex: Male
  Weight: 78.75 kg

DRUGS (8)
  1. CASODEX [Concomitant]
     Active Substance: BICALUTAMIDE
  2. ABIRATERONE. [Suspect]
     Active Substance: ABIRATERONE ACETATE
     Indication: PROSTATE CANCER
     Route: 048
     Dates: start: 20210325, end: 20210720
  3. ZOCOR [Concomitant]
     Active Substance: SIMVASTATIN
  4. LUPRON [Concomitant]
     Active Substance: LEUPROLIDE ACETATE
  5. COENZYME Q10 [Concomitant]
     Active Substance: DIETARY SUPPLEMENT\UBIDECARENONE
  6. VITAMIN B12 [Concomitant]
     Active Substance: CYANOCOBALAMIN
  7. ZINC. [Concomitant]
     Active Substance: ZINC
  8. PREDNISONE. [Concomitant]
     Active Substance: PREDNISONE

REACTIONS (2)
  - Renal impairment [None]
  - Urinary bladder haemorrhage [None]

NARRATIVE: CASE EVENT DATE: 20210720
